FAERS Safety Report 7390114-9 (Version None)
Quarter: 2011Q1

REPORT INFORMATION
  Report Type: 
  Country: None (occurrence: None)
  Receive Date: 20110325
  Receipt Date: 20110316
  Transmission Date: 20110831
  Serious: Yes (Hospitalization)
  Sender: FDA-Public Use
  Company Number: 2011SP010740

PATIENT
  Age: 81 Year
  Sex: Female

DRUGS (8)
  1. CHINESE HERBAL MEDICINE [Concomitant]
  2. REFLEX (MIRTAZAPINE /01293201/) [Suspect]
     Indication: PERSECUTORY DELUSION
     Dosage: 15 MG;QD;PO; 30 MG; QD; PO
     Route: 048
  3. REFLEX (MIRTAZAPINE /01293201/) [Suspect]
     Indication: HALLUCINATION, VISUAL
     Dosage: 15 MG;QD;PO; 30 MG; QD; PO
     Route: 048
  4. REFLEX (MIRTAZAPINE /01293201/) [Suspect]
     Indication: DEPRESSION
     Dosage: 15 MG;QD;PO; 30 MG; QD; PO
     Route: 048
  5. ZOPICLONE [Concomitant]
  6. TRIAZOLAM [Concomitant]
  7. DONEPEZIL HYDROCHLORIDE [Concomitant]
  8. QUETIAPINE FUMARATE [Concomitant]

REACTIONS (14)
  - CONDITION AGGRAVATED [None]
  - ANXIETY [None]
  - ANGER [None]
  - SPINAL COMPRESSION FRACTURE [None]
  - DEPRESSION [None]
  - SPEECH DISORDER [None]
  - HALLUCINATION, VISUAL [None]
  - FEELING ABNORMAL [None]
  - PARKINSON'S DISEASE [None]
  - IRRITABILITY [None]
  - CRYING [None]
  - DELUSION [None]
  - INSOMNIA [None]
  - AGITATION [None]
